FAERS Safety Report 21400826 (Version 1)
Quarter: 2022Q4

REPORT INFORMATION
  Report Type: Spontaneous
  Country: CA (occurrence: None)
  Receive Date: 20221003
  Receipt Date: 20221003
  Transmission Date: 20230113
  Serious: Yes (Other)
  Sender: FDA-Public Use
  Company Number: CA-ROCHE-3186050

PATIENT
  Sex: Female

DRUGS (1)
  1. AVASTIN [Suspect]
     Active Substance: BEVACIZUMAB
     Indication: Product used for unknown indication
     Dosage: NO
     Route: 050

REACTIONS (5)
  - Ocular hyperaemia [Unknown]
  - Dry eye [Unknown]
  - Eye injury [Unknown]
  - Pain [Unknown]
  - Off label use [Unknown]
